FAERS Safety Report 8354383-0 (Version None)
Quarter: 2012Q2

REPORT INFORMATION
  Report Type: 
  Country: None (occurrence: None)
  Receive Date: 20120511
  Receipt Date: 20120426
  Transmission Date: 20120825
  Serious: Yes (Life-Threatening, Hospitalization)
  Sender: FDA-Public Use
  Company Number: US-ROCHE-1053365

PATIENT
  Sex: Female
  Weight: 73.029 kg

DRUGS (2)
  1. VISMODEGIB [Suspect]
     Indication: BASAL CELL CARCINOMA
     Route: 048
     Dates: start: 20111208, end: 20120209
  2. VISMODEGIB [Suspect]
     Dosage: RESTARTED

REACTIONS (3)
  - SINUSITIS [None]
  - EPISTAXIS [None]
  - RUPTURED CEREBRAL ANEURYSM [None]
